FAERS Safety Report 19109166 (Version 1)
Quarter: 2021Q2

REPORT INFORMATION
  Report Type: Spontaneous
  Country: CA (occurrence: CA)
  Receive Date: 20210409
  Receipt Date: 20210409
  Transmission Date: 20210717
  Serious: Yes (Life-Threatening)
  Sender: FDA-Public Use
  Company Number: CA-AUROBINDO-AUR-APL-2021-014432

PATIENT
  Age: 83 Year
  Sex: Female

DRUGS (3)
  1. MEROPENEM INJECTION [Suspect]
     Active Substance: MEROPENEM
     Indication: PRODUCT USED FOR UNKNOWN INDICATION
     Dosage: 450 MILLIGRAM
     Route: 065
  2. MEROPENEM INJECTION [Suspect]
     Active Substance: MEROPENEM
     Dosage: 50 MILLIGRAM
     Route: 065
  3. MEROPENEM INJECTION [Suspect]
     Active Substance: MEROPENEM
     Dosage: 5 MILLIGRAM
     Route: 042

REACTIONS (4)
  - Wheezing [Recovered/Resolved]
  - Respiratory rate increased [Recovered/Resolved]
  - Chills [Recovered/Resolved]
  - Pyrexia [Recovered/Resolved]
